FAERS Safety Report 11548664 (Version 2)
Quarter: 2016Q4

REPORT INFORMATION
  Report Type: Spontaneous
  Country: US (occurrence: US)
  Receive Date: 20150924
  Receipt Date: 20161202
  Transmission Date: 20170206
  Serious: Yes (Other)
  Sender: FDA-Public Use
  Company Number: US-DSJP-DSU-2015-129592

PATIENT

DRUGS (4)
  1. LEG CRAMP MEDICATION [Concomitant]
     Indication: MUSCLE SPASMS
     Dosage: UNK
  2. UNKNOWN MEDICATION [Concomitant]
     Active Substance: UNSPECIFIED INGREDIENT
     Indication: ANXIETY
     Dosage: UNK, AS NEEDED
  3. BENICAR HCT [Suspect]
     Active Substance: HYDROCHLOROTHIAZIDE\OLMESARTAN MEDOXOMIL
     Indication: HYPERTENSION
     Dosage: 40/12.5 MG, QD
     Route: 048
     Dates: start: 201406, end: 201611
  4. PRAVASTATIN. [Concomitant]
     Active Substance: PRAVASTATIN
     Indication: HYPERLIPIDAEMIA
     Dosage: UNK

REACTIONS (6)
  - Fungal infection [Not Recovered/Not Resolved]
  - Hypertension [Not Recovered/Not Resolved]
  - Hysterectomy [Recovered/Resolved]
  - Treatment noncompliance [Not Recovered/Not Resolved]
  - Rash [Recovered/Resolved]
  - Ovarian cystectomy [Recovered/Resolved]

NARRATIVE: CASE EVENT DATE: 2014
